FAERS Safety Report 16915711 (Version 1)
Quarter: 2019Q4

REPORT INFORMATION
  Report Type: Spontaneous
  Country: US (occurrence: US)
  Receive Date: 20191013
  Receipt Date: 20191013
  Transmission Date: 20200122
  Serious: No
  Sender: FDA-Public Use
  Company Number: None

PATIENT
  Age: 64 Year
  Sex: Male
  Weight: 68.85 kg

DRUGS (1)
  1. WIXELA INHUB [Suspect]
     Active Substance: FLUTICASONE PROPIONATE\SALMETEROL XINAFOATE
     Indication: ASTHMA
     Route: 055
     Dates: start: 20190919, end: 20191013

REACTIONS (5)
  - Complication associated with device [None]
  - Cough [None]
  - Product substitution issue [None]
  - Product formulation issue [None]
  - Asthma [None]

NARRATIVE: CASE EVENT DATE: 20191001
